FAERS Safety Report 5818682-6 (Version None)
Quarter: 2008Q3

REPORT INFORMATION
  Report Type: 
  Country: None (occurrence: None)
  Receive Date: 20080717
  Receipt Date: 20080717
  Transmission Date: 20090109
  Serious: No
  Sender: FDA-Public Use
  Company Number: None

PATIENT
  Age: 59 Year
  Sex: Female
  Weight: 0.4536 kg

DRUGS (2)
  1. LEVAQUIN [Suspect]
     Indication: CHOLECYSTECTOMY
     Dosage: 500MG ONE TIME IV DRIP
     Route: 041
     Dates: start: 20080711, end: 20080711
  2. LEVAQUIN [Suspect]
     Indication: PROPHYLAXIS
     Dosage: 500MG ONE TIME IV DRIP
     Route: 041
     Dates: start: 20080711, end: 20080711

REACTIONS (2)
  - INJECTION SITE ERYTHEMA [None]
  - INJECTION SITE PRURITUS [None]
